FAERS Safety Report 7126293-8 (Version None)
Quarter: 2010Q4

REPORT INFORMATION
  Report Type: 
  Country: None (occurrence: None)
  Receive Date: 20101129
  Receipt Date: 20101116
  Transmission Date: 20110411
  Serious: Yes (Hospitalization)
  Sender: FDA-Public Use
  Company Number: US-ELI_LILLY_AND_COMPANY-US201004007545

PATIENT
  Sex: Female

DRUGS (8)
  1. FORTEO [Suspect]
     Indication: OSTEOPOROSIS
     Dosage: 20 UG, DAILY (1/D)
     Dates: start: 20100416
  2. FORTEO [Suspect]
     Dosage: 20 UG, DAILY (1/D)
  3. FORTEO [Suspect]
     Dosage: 20 UG, DAILY (1/D)
  4. NORVASC [Concomitant]
     Dosage: UNK, DAILY (1/D) MORNING
  5. ZIAC [Concomitant]
     Dosage: UNK, DAILY (1/D) MORNING
  6. OSCAL [Concomitant]
     Dosage: UNK, 2/D
  7. LOVAZA [Concomitant]
     Dosage: UNK, 2/D
  8. VIT D [Concomitant]

REACTIONS (4)
  - ABDOMINAL PAIN [None]
  - BLOOD PRESSURE INCREASED [None]
  - UTERINE PROLAPSE [None]
  - VAGINAL HAEMORRHAGE [None]
